FAERS Safety Report 25737377 (Version 1)
Quarter: 2025Q3

REPORT INFORMATION
  Report Type: Spontaneous
  Country: US (occurrence: US)
  Receive Date: 20250828
  Receipt Date: 20250828
  Transmission Date: 20251020
  Serious: No
  Sender: INTERSECT ENT
  Company Number: US-MEDTRONIC-3008301917-2025-00004-0826955552

PATIENT
  Age: 71 Year
  Sex: Male

DRUGS (1)
  1. SINUVA [Suspect]
     Active Substance: MOMETASONE FUROATE
     Indication: Chronic rhinosinusitis with nasal polyps
     Route: 006

REACTIONS (2)
  - Nasal congestion [Unknown]
  - Chronic rhinosinusitis with nasal polyps [Unknown]

NARRATIVE: CASE EVENT DATE: 20250620
